FAERS Safety Report 10169679 (Version 4)
Quarter: 2014Q4

REPORT INFORMATION
  Report Type: Report from Study
  Country: JP (occurrence: JP)
  Receive Date: 20140513
  Receipt Date: 20141211
  Transmission Date: 20150528
  Serious: Yes (Hospitalization)
  Sender: FDA-Public Use
  Company Number: JP-PFIZER INC-2014128122

PATIENT
  Age: 50 Year
  Sex: Male
  Weight: 65 kg

DRUGS (13)
  1. LYRICA [Concomitant]
     Active Substance: PREGABALIN
     Dosage: 300 MG, 2X/DAY
     Route: 048
     Dates: start: 20140325
  2. OXYCONTIN [Concomitant]
     Active Substance: OXYCODONE HYDROCHLORIDE
     Dosage: 20 MG, 2X/DAY
     Route: 048
     Dates: start: 20140304
  3. VIDARABINE [Concomitant]
     Active Substance: VIDARABINE
     Dosage: UNK, 2X/DAY
     Route: 003
     Dates: start: 20140318
  4. XALKORI [Suspect]
     Active Substance: CRIZOTINIB
     Indication: NON-SMALL CELL LUNG CANCER
     Dosage: 250 MG, 2X/DAY
     Route: 048
     Dates: start: 20140313, end: 20140407
  5. LYRICA [Concomitant]
     Active Substance: PREGABALIN
     Dosage: 225 MG, DAILY (TOTAL DAILY DOSE, TAKEN TWICE DAILY: 75 MG ONE TIME AND 150 MG ONE TIME)
     Route: 048
     Dates: start: 20140228, end: 20140313
  6. METHYCOBAL [Concomitant]
     Active Substance: METHYLCOBALAMIN
     Dosage: 500 UG, 3X/DAY
     Route: 048
     Dates: start: 20140228
  7. NOVAMIN [Concomitant]
     Active Substance: PROCHLORPERAZINE MALEATE
     Dosage: 5 MG, 3X/DAY
     Route: 048
     Dates: start: 20140304
  8. LYRICA [Concomitant]
     Active Substance: PREGABALIN
     Dosage: 375 MG, DAILY (TOTAL DAILY DOSE, TAKEN TWICE DAILY: 150 MG ONE TIME AND 225 MG ONE TIME)
     Route: 048
     Dates: start: 20140314, end: 20140318
  9. CALONAL [Concomitant]
     Active Substance: ACETAMINOPHEN
     Dosage: 200 MG, AS NEEDED
     Route: 048
     Dates: start: 20140315
  10. MAGLAX [Concomitant]
     Active Substance: MAGNESIUM OXIDE
     Dosage: 990 MG, 3X/DAY
     Route: 048
     Dates: start: 20140325
  11. LYRICA [Concomitant]
     Active Substance: PREGABALIN
     Dosage: 225 MG, 2X/DAY
     Route: 048
     Dates: start: 20140318, end: 20140324
  12. VOLTAREN [Concomitant]
     Active Substance: DICLOFENAC SODIUM
     Dosage: 25 MG, AS NEEDED
     Route: 054
     Dates: start: 20140318
  13. TRAMCET [Concomitant]
     Active Substance: ACETAMINOPHEN\TRAMADOL
     Dosage: 2 DF, 4X/DAY
     Route: 048
     Dates: start: 20140225

REACTIONS (2)
  - Venous thrombosis limb [Recovered/Resolved with Sequelae]
  - Pulmonary embolism [Recovered/Resolved with Sequelae]

NARRATIVE: CASE EVENT DATE: 20140407
